FAERS Safety Report 9515226 (Version 1)
Quarter: 2013Q1

REPORT INFORMATION
  Report Type: Spontaneous
  Country: US (occurrence: None)
  Receive Date: 20130305
  Receipt Date: 20130305
  Transmission Date: 20140127
  Serious: Yes (Hospitalization, Other)
  Sender: FDA-Public Use
  Company Number: 163-21880-12101828

PATIENT
  Age: 79 Year
  Sex: Female
  Weight: 73.03 kg

DRUGS (10)
  1. REVLIMID (LENALIDOMIDE) (15 MILLIGRAM, CAPSULES) [Suspect]
     Indication: PLASMA CELL MYELOMA
     Dosage: 07/21/2012 - TEMP. INTERRUPTED (21 IN 21 D)
     Route: 048
     Dates: start: 20120721
  2. AMLODIPINE BESYLATE (AMLODIPINE BESILATE) [Concomitant]
  3. DEXAMETHASONE (DEXAMETHASONE) [Concomitant]
  4. TRAZODONE HCL (TRAZODONE HYDROCHLORIDE) [Concomitant]
  5. ACYCLOVIR (ACICLOVIR) [Concomitant]
  6. LEVOTHYROXINE (LEVOTHYROXINE) [Concomitant]
  7. CELEXA (CITALOPRAM HYDROBROMIDE) [Concomitant]
  8. FOLIC ACID (FOLIC ACID) [Concomitant]
  9. PROCRIT [Concomitant]
  10. VELCADE (BORTEZOMIB) [Concomitant]

REACTIONS (3)
  - Pulmonary thrombosis [None]
  - Insomnia [None]
  - Fatigue [None]
